FAERS Safety Report 9254603 (Version 1)
Quarter: 2013Q2

REPORT INFORMATION
  Report Type: Spontaneous
  Country: JP (occurrence: None)
  Receive Date: 20130419
  Receipt Date: 20130419
  Transmission Date: 20140414
  Serious: Yes (Other)
  Sender: FDA-Public Use
  Company Number: FK201301192

PATIENT
  Age: 36 Year
  Sex: Male
  Weight: 85 kg

DRUGS (3)
  1. PROPOFOL [Suspect]
     Indication: INDUCTION OF ANAESTHESIA
     Route: 042
  2. FENTANYL (FENTANYL) (FENTANYL) [Suspect]
     Indication: INDUCTION OF ANAESTHESIA
     Route: 042
  3. SEVOFLURANE [Suspect]
     Indication: MAINTENANCE OF ANAESTHESIA

REACTIONS (5)
  - Heart rate increased [None]
  - Chromaturia [None]
  - Myalgia [None]
  - Hyperthermia malignant [None]
  - Myoglobinuria [None]
